FAERS Safety Report 22660224 (Version 1)
Quarter: 2023Q2

REPORT INFORMATION
  Report Type: Spontaneous
  Country: US (occurrence: US)
  Receive Date: 20230630
  Receipt Date: 20230630
  Transmission Date: 20230722
  Serious: No
  Sender: FDA-Public Use
  Company Number: US-NEUROCRINE BIOSCIENCES INC.-2023NBI03927

PATIENT

DRUGS (4)
  1. INGREZZA [Suspect]
     Active Substance: VALBENAZINE
     Indication: Tardive dyskinesia
     Dosage: 40 MILLIGRAM, UNK
     Route: 065
     Dates: start: 2023, end: 2023
  2. COGENTIN [Suspect]
     Active Substance: BENZTROPINE MESYLATE
     Indication: Product used for unknown indication
     Dosage: 1 MILLIGRAM
     Route: 065
  3. COGENTIN [Suspect]
     Active Substance: BENZTROPINE MESYLATE
     Dosage: 2 MILLIGRAM
     Route: 065
  4. INVEGA SUSTENNA [Concomitant]
     Active Substance: PALIPERIDONE PALMITATE
     Indication: Mental disorder
     Dosage: UNKNOWN DOSE, ONCE MONTHLY FOR HER MENTALL ILLNESS
     Route: 065

REACTIONS (1)
  - Tardive dyskinesia [Recovering/Resolving]

NARRATIVE: CASE EVENT DATE: 20230401
